FAERS Safety Report 25865246 (Version 1)
Quarter: 2025Q3

REPORT INFORMATION
  Report Type: Spontaneous
  Country: US (occurrence: None)
  Receive Date: 20250930
  Receipt Date: 20250930
  Transmission Date: 20251020
  Serious: Yes (Hospitalization)
  Sender: FDA-CTU
  Company Number: None

PATIENT
  Age: 29 Year
  Sex: Female

DRUGS (1)
  1. TOPIRAMATE [Suspect]
     Active Substance: TOPIRAMATE
     Indication: Migraine
     Dosage: 25 MG DAILY ORAL
     Route: 048
     Dates: start: 20250916, end: 20250929

REACTIONS (3)
  - Oropharyngeal pain [None]
  - Rash [None]
  - Rash [None]

NARRATIVE: CASE EVENT DATE: 20250929
